FAERS Safety Report 5323737-9 (Version None)
Quarter: 2007Q2

REPORT INFORMATION
  Report Type: 
  Country: None (occurrence: None)
  Receive Date: 20070514
  Receipt Date: 20070504
  Transmission Date: 20071010
  Serious: Yes (Hospitalization)
  Sender: FDA-Public Use
  Company Number: KR-ASTRAZENECA-2007AP02403

PATIENT
  Age: 15673 Day
  Sex: Female

DRUGS (8)
  1. IRESSA [Suspect]
     Indication: NON-SMALL CELL LUNG CANCER STAGE IIIA
     Route: 048
     Dates: start: 20070326, end: 20070423
  2. IRESSA [Suspect]
     Indication: SQUAMOUS CELL CARCINOMA
     Route: 048
     Dates: start: 20070326, end: 20070423
  3. TAXOL [Concomitant]
     Dosage: 4 CYCLES
     Dates: end: 20070201
  4. CISPLATIN [Concomitant]
     Dosage: 4 CYCLES
     Dates: end: 20070201
  5. CLARITHROMYCIN [Concomitant]
     Indication: PNEUMONIA
     Route: 048
     Dates: start: 20070326, end: 20070402
  6. DICODE [Concomitant]
     Indication: COUGH
     Route: 048
     Dates: start: 20070326
  7. ULTRACET [Concomitant]
     Indication: PAIN
     Route: 048
     Dates: start: 20070326
  8. ROMPECT [Concomitant]
     Indication: COUGH
     Route: 048
     Dates: start: 20070326, end: 20070402

REACTIONS (1)
  - PNEUMONIA [None]
